FAERS Safety Report 13834946 (Version 7)
Quarter: 2018Q1

REPORT INFORMATION
  Report Type: Report from Study
  Country: CA (occurrence: CA)
  Receive Date: 20170804
  Receipt Date: 20180130
  Transmission Date: 20180508
  Serious: Yes (Hospitalization)
  Sender: FDA-Public Use
  Company Number: CA-GLAXOSMITHKLINE-CA2017GSK118704

PATIENT
  Age: 40 Year
  Sex: Female

DRUGS (2)
  1. MEPOLIZUMAB [Suspect]
     Active Substance: MEPOLIZUMAB
     Dosage: 100 MG, CYC
     Route: 042
  2. MEPOLIZUMAB [Suspect]
     Active Substance: MEPOLIZUMAB
     Indication: ASTHMA
     Dosage: 100 MG, CYC, (MONTHLY)
     Route: 042

REACTIONS (11)
  - Fatigue [Not Recovered/Not Resolved]
  - Regurgitation [Unknown]
  - Diarrhoea [Not Recovered/Not Resolved]
  - Influenza [Unknown]
  - Oesophageal pH increased [Unknown]
  - Asthma [Unknown]
  - Malaise [Not Recovered/Not Resolved]
  - General physical health deterioration [Unknown]
  - Abdominal pain [Not Recovered/Not Resolved]
  - Viral infection [Unknown]
  - Pulmonary function test abnormal [Unknown]

NARRATIVE: CASE EVENT DATE: 20170711
